FAERS Safety Report 6197132-7 (Version None)
Quarter: 2009Q2

REPORT INFORMATION
  Report Type: 
  Country: None (occurrence: None)
  Receive Date: 20090518
  Receipt Date: 20090518
  Transmission Date: 20091009
  Serious: No
  Sender: FDA-Public Use
  Company Number: None

PATIENT
  Age: 47 Year
  Sex: Female
  Weight: 52.1637 kg

DRUGS (2)
  1. PREMARIN [Suspect]
     Indication: HYSTERECTOMY
     Dosage: 1 DAILY
     Dates: start: 20000111, end: 20060308
  2. PREMARIN [Suspect]
     Indication: HYSTERECTOMY
     Dosage: 1 DAILY
     Dates: start: 20060413, end: 20070824

REACTIONS (12)
  - ACQUIRED CARDIAC SEPTAL DEFECT [None]
  - ALOPECIA [None]
  - BLOOD PRESSURE SYSTOLIC INCREASED [None]
  - FATIGUE [None]
  - GINGIVAL BLEEDING [None]
  - GINGIVAL PAIN [None]
  - HEADACHE [None]
  - LICHEN PLANUS [None]
  - NAIL DISORDER [None]
  - NASAL DISORDER [None]
  - SCAR [None]
  - SINUSITIS [None]
